FAERS Safety Report 8229397-1 (Version None)
Quarter: 2012Q1

REPORT INFORMATION
  Report Type: 
  Country: None (occurrence: None)
  Receive Date: 20120322
  Receipt Date: 20120315
  Transmission Date: 20120608
  Serious: Yes (Hospitalization)
  Sender: FDA-Public Use
  Company Number: PL-JNJFOC-20081200240

PATIENT
  Sex: Female
  Weight: 80 kg

DRUGS (40)
  1. GOLIMUMAB [Suspect]
     Route: 058
     Dates: start: 20080910
  2. GOLIMUMAB [Suspect]
     Route: 058
     Dates: start: 20071008
  3. GOLIMUMAB [Suspect]
     Route: 058
     Dates: start: 20071105
  4. GOLIMUMAB [Suspect]
     Route: 058
     Dates: start: 20080102
  5. METHOTREXATE [Concomitant]
     Route: 048
     Dates: start: 20080623, end: 20081119
  6. POTASSIUM CHLORIDE [Concomitant]
     Route: 048
     Dates: start: 20041208, end: 20081204
  7. LISINOPRIL [Concomitant]
     Route: 048
     Dates: start: 20060701, end: 20081204
  8. GOLIMUMAB [Suspect]
     Route: 058
     Dates: start: 20070226
  9. GOLIMUMAB [Suspect]
     Route: 058
     Dates: start: 20070129
  10. GOLIMUMAB [Suspect]
     Route: 058
     Dates: start: 20070620
  11. GOLIMUMAB [Suspect]
     Route: 058
     Dates: start: 20080128
  12. RANTUDIL [Concomitant]
     Route: 048
     Dates: start: 20060613, end: 20081119
  13. ACETAMINOPHEN [Concomitant]
     Route: 048
     Dates: start: 20081204, end: 20090109
  14. GOLIMUMAB [Suspect]
     Route: 058
     Dates: start: 20061009
  15. GOLIMUMAB [Suspect]
     Route: 058
     Dates: start: 20070910
  16. GOLIMUMAB [Suspect]
     Route: 058
     Dates: start: 20080519
  17. GOLIMUMAB [Suspect]
     Route: 058
     Dates: start: 20080601
  18. AC FOLICUM [Concomitant]
     Route: 048
     Dates: start: 20060228, end: 20081119
  19. ACETAMINOPHEN [Concomitant]
     Route: 048
     Dates: start: 20081006, end: 20081023
  20. GOLIMUMAB [Suspect]
     Route: 058
     Dates: start: 20061206
  21. METHOTREXATE [Concomitant]
     Route: 048
     Dates: start: 20071224, end: 20080609
  22. METHYLPREDNISOLONE [Concomitant]
     Route: 048
     Dates: start: 20050512
  23. CALCIUM CARBONATE [Concomitant]
     Route: 048
     Dates: start: 20060228
  24. GOLIMUMAB [Suspect]
     Indication: RHEUMATOID ARTHRITIS
     Route: 058
     Dates: start: 20070423
  25. GOLIMUMAB [Suspect]
     Route: 058
     Dates: start: 20080326
  26. INDAPAMIDE [Concomitant]
     Route: 048
     Dates: start: 20060503
  27. GOLIMUMAB [Suspect]
     Route: 058
     Dates: start: 20070326
  28. GOLIMUMAB [Suspect]
     Route: 058
     Dates: start: 20061106
  29. GOLIMUMAB [Suspect]
     Route: 058
     Dates: start: 20070521
  30. GOLIMUMAB [Suspect]
     Route: 058
     Dates: start: 20071203
  31. GOLIMUMAB [Suspect]
     Route: 058
     Dates: start: 20080421
  32. METHOTREXATE [Suspect]
     Indication: RHEUMATOID ARTHRITIS
     Route: 048
     Dates: start: 20060828, end: 20061002
  33. ACETAMINOPHEN [Concomitant]
     Route: 048
     Dates: start: 20081024, end: 20081030
  34. GOLIMUMAB [Suspect]
     Route: 058
     Dates: start: 20070718
  35. GOLIMUMAB [Suspect]
     Route: 058
     Dates: start: 20070814
  36. GOLIMUMAB [Suspect]
     Route: 058
     Dates: start: 20080225
  37. GOLIMUMAB [Suspect]
     Route: 058
     Dates: start: 20070103
  38. METHOTREXATE [Suspect]
     Route: 048
     Dates: start: 20061009, end: 20080616
  39. LANZUL S [Concomitant]
     Route: 048
     Dates: start: 20030101
  40. BETOPTIC [Concomitant]
     Route: 047
     Dates: start: 20050501

REACTIONS (1)
  - TUBERCULOSIS [None]
